FAERS Safety Report 7234478-5 (Version None)
Quarter: 2011Q1

REPORT INFORMATION
  Report Type: 
  Country: None (occurrence: None)
  Receive Date: 20110119
  Receipt Date: 20110114
  Transmission Date: 20110831
  Serious: Yes (Hospitalization)
  Sender: FDA-Public Use
  Company Number: US-ELI_LILLY_AND_COMPANY-US201012005138

PATIENT
  Sex: Male
  Weight: 123.81 kg

DRUGS (10)
  1. HUMALOG [Suspect]
     Indication: TYPE 2 DIABETES MELLITUS
     Dosage: 15 U, 3/D
     Route: 058
     Dates: start: 20080101
  2. ASPIRIN [Concomitant]
     Dosage: UNK, DAILY (1/D)
  3. METFORMIN HCL [Concomitant]
     Dosage: 1000 MG, 2/D
  4. HUMALOG [Suspect]
     Dosage: 15 U, 3/D
     Route: 058
     Dates: start: 20080101
  5. CLONIDINE [Concomitant]
     Dosage: UNK, 3/D
  6. TRIAMTERENE AND HYDROCHLOROTHIAZIDE [Concomitant]
     Dosage: UNK, DAILY (1/D)
  7. MULTI-VITAMINS [Concomitant]
  8. LANTUS [Concomitant]
     Dosage: UNK, EACH EVENING
  9. LIPITOR [Concomitant]
     Dosage: 20 MG, DAILY (1/D)
  10. QUINAPRIL [Concomitant]
     Dosage: 40 MG, DAILY (1/D)

REACTIONS (2)
  - CHOLECYSTITIS ACUTE [None]
  - GLYCOSYLATED HAEMOGLOBIN INCREASED [None]
